FAERS Safety Report 14238197 (Version 8)
Quarter: 2018Q2

REPORT INFORMATION
  Report Type: Spontaneous
  Country: US (occurrence: US)
  Receive Date: 20171130
  Receipt Date: 20180511
  Transmission Date: 20180711
  Serious: No
  Sender: FDA-Public Use
  Company Number: PHEH2017US038084

PATIENT
  Sex: Male

DRUGS (3)
  1. LENVIMA [Suspect]
     Active Substance: LENVATINIB
     Indication: RENAL CANCER
     Dosage: 18 MG, QD
     Route: 048
     Dates: start: 20171115
  2. LENVIMA [Suspect]
     Active Substance: LENVATINIB
     Indication: RENAL CANCER
  3. AFINITOR [Suspect]
     Active Substance: EVEROLIMUS
     Indication: RENAL CANCER
     Dosage: UNK
     Route: 065

REACTIONS (18)
  - Hallucination [Recovering/Resolving]
  - Fatigue [Unknown]
  - Confusional state [Recovering/Resolving]
  - Toothache [Unknown]
  - Hypertension [Recovering/Resolving]
  - Blood pressure increased [Unknown]
  - Asthenia [Unknown]
  - Peripheral swelling [Not Recovered/Not Resolved]
  - Dizziness [Unknown]
  - Insomnia [Unknown]
  - Diarrhoea [Unknown]
  - Chest pain [Unknown]
  - Tooth fracture [Unknown]
  - Abdominal pain [Unknown]
  - Back pain [Unknown]
  - Gingival pain [Not Recovered/Not Resolved]
  - Oropharyngeal pain [Unknown]
  - Cough [Recovered/Resolved]
